FAERS Safety Report 7459527-0 (Version None)
Quarter: 2011Q2

REPORT INFORMATION
  Report Type: 
  Country: None (occurrence: None)
  Receive Date: 20110426
  Receipt Date: 20110415
  Transmission Date: 20111010
  Serious: Yes (Death, Hospitalization)
  Sender: FDA-Public Use
  Company Number: DKLU1069845

PATIENT
  Age: 20 Year
  Sex: Male

DRUGS (8)
  1. DOXORUBICIN HCL [Suspect]
     Indication: HODGKIN'S DISEASE NODULAR SCLEROSIS STAGE IV
     Dates: start: 19890101
  2. DACARBAZINE [Suspect]
     Indication: HODGKIN'S DISEASE NODULAR SCLEROSIS STAGE IV
     Dates: start: 19890101
  3. MUSTARGEN (MECHLORETHIAMINE HCL) [Suspect]
     Indication: HODGKIN'S DISEASE NODULAR SCLEROSIS STAGE IV
     Dates: start: 19890101
  4. VINCRISTINE [Suspect]
     Indication: HODGKIN'S DISEASE NODULAR SCLEROSIS STAGE IV
     Dates: start: 19890101
  5. PROCARBAZINE HYDROCHLORIDE [Suspect]
     Indication: HODGKIN'S DISEASE NODULAR SCLEROSIS STAGE IV
     Dates: start: 19890101
  6. PREDNISONE [Suspect]
     Indication: HODGKIN'S DISEASE NODULAR SCLEROSIS STAGE IV
     Dates: start: 19890101
  7. VINBLASTINE SULFATE [Suspect]
     Indication: HODGKIN'S DISEASE NODULAR SCLEROSIS STAGE IV
     Dates: start: 19890101
  8. BLEOMYCIN SULFATE [Suspect]
     Indication: HODGKIN'S DISEASE NODULAR SCLEROSIS STAGE IV
     Dates: start: 19890101

REACTIONS (5)
  - HYPERCALCAEMIA [None]
  - PARATHYROID TUMOUR BENIGN [None]
  - CHONDROSARCOMA METASTATIC [None]
  - NO THERAPEUTIC RESPONSE [None]
  - HYPERPHOSPHATAEMIA [None]
